FAERS Safety Report 9447978 (Version 1)
Quarter: 2013Q3

REPORT INFORMATION
  Report Type: Spontaneous
  Country: US (occurrence: None)
  Receive Date: 20130807
  Receipt Date: 20130807
  Transmission Date: 20140515
  Serious: Yes (Life-Threatening)
  Sender: FDA-Public Use
  Company Number: None

PATIENT
  Age: 27 Year
  Sex: Female
  Weight: 61.5 kg

DRUGS (1)
  1. HURRICAINE [Suspect]
     Indication: ENDOTRACHEAL INTUBATION
     Dosage: 2 SPRAYS   PRN/AS NEEDED  TOPICAL
     Route: 061
     Dates: start: 20130804, end: 20130804

REACTIONS (4)
  - Oxygen saturation decreased [None]
  - Tachycardia [None]
  - Cyanosis [None]
  - Methaemoglobinaemia [None]
